FAERS Safety Report 5936199-5 (Version None)
Quarter: 2008Q4

REPORT INFORMATION
  Report Type: 
  Country: None (occurrence: None)
  Receive Date: 20081028
  Receipt Date: 20081022
  Transmission Date: 20090506
  Serious: Yes (Hospitalization)
  Sender: FDA-Public Use
  Company Number: 2008AL011334

PATIENT
  Age: 8 Year
  Sex: Male

DRUGS (2)
  1. FEVERALL [Suspect]
     Indication: PYREXIA
     Dosage: 600 MG;
  2. CEFDINIR [Concomitant]

REACTIONS (6)
  - DRUG HYPERSENSITIVITY [None]
  - ERYTHEMA MULTIFORME [None]
  - LEUKOPENIA [None]
  - LIVER DISORDER [None]
  - LIVER PALPABLE SUBCOSTAL [None]
  - VANISHING BILE DUCT SYNDROME [None]
